FAERS Safety Report 7867880-9 (Version None)
Quarter: 2011Q4

REPORT INFORMATION
  Report Type: 
  Country: None (occurrence: None)
  Receive Date: 20111028
  Receipt Date: 20111005
  Transmission Date: 20120403
  Serious: Yes (Death)
  Sender: FDA-Public Use
  Company Number: JP-PFIZER INC-2011223690

PATIENT
  Age: 78 Year
  Sex: Male

DRUGS (1)
  1. AZULFIDINE [Suspect]
     Dosage: UNK
     Route: 048
     Dates: start: 20100301, end: 20100401

REACTIONS (2)
  - SEPSIS [None]
  - AGRANULOCYTOSIS [None]
